FAERS Safety Report 6236920-5 (Version None)
Quarter: 2009Q2

REPORT INFORMATION
  Report Type: 
  Country: None (occurrence: None)
  Receive Date: 20090619
  Receipt Date: 20090427
  Transmission Date: 20091009
  Serious: No
  Sender: FDA-Public Use
  Company Number: US-ASTRAZENECA-2008UW28323

PATIENT
  Age: 66 Year
  Sex: Female

DRUGS (11)
  1. SYMBICORT [Suspect]
     Indication: ASTHMA
     Dosage: 160/4.5 MCG ONE PUFF DAILY
     Route: 055
     Dates: start: 20081001, end: 20090101
  2. PULMICORT RESPULES [Concomitant]
     Indication: ASTHMA
     Route: 055
  3. CELEBREX [Concomitant]
     Indication: ARTHRITIS
  4. LIPITOR [Concomitant]
     Indication: BLOOD CHOLESTEROL INCREASED
  5. VENTOLIN [Concomitant]
     Indication: ASTHMA
  6. XANAX [Concomitant]
  7. BROVANA [Concomitant]
     Indication: ASTHMA
  8. OXYGEN [Concomitant]
  9. FORADIL [Concomitant]
     Indication: ASTHMA
  10. ALBUTEROL [Concomitant]
     Indication: ASTHMA
  11. ALPRAZOLAM [Concomitant]
     Indication: ANXIETY

REACTIONS (2)
  - GLOSSODYNIA [None]
  - INSOMNIA [None]
